FAERS Safety Report 8614414-7 (Version None)
Quarter: 2012Q3

REPORT INFORMATION
  Report Type: 
  Country: None (occurrence: None)
  Receive Date: 20120823
  Receipt Date: 20120816
  Transmission Date: 20120928
  Serious: Yes (Hospitalization)
  Sender: FDA-Public Use
  Company Number: US-UCBSA-040580

PATIENT
  Age: 36 Year
  Sex: Female
  Weight: 55 kg

DRUGS (24)
  1. VITAMIN B-12 [Concomitant]
     Route: 048
     Dates: start: 20100901
  2. M.V.I. [Concomitant]
     Dosage: 2 TABLETS
     Route: 048
     Dates: start: 20110701
  3. ZOFRAN [Concomitant]
     Dosage: 4 MG/2 ML
  4. PROTONIX [Concomitant]
     Dosage: 40 MG EC TABLET
  5. ZITHROMAX [Concomitant]
     Dosage: 500 MG/D5W 250 ML
  6. LIDOCAINE [Concomitant]
  7. CIMZIA [Suspect]
     Indication: CROHN'S DISEASE
     Route: 058
     Dates: start: 20101012
  8. LOVENOX [Concomitant]
     Dosage: 40 MG
  9. AVELOX [Concomitant]
     Dosage: 400 MG/ NS 250 ML
     Route: 042
  10. TYLENOL [Concomitant]
     Dosage: 325 MG TAB
  11. AMBIEN [Concomitant]
     Dosage: 5 MG
     Route: 048
  12. DONNATAL [Concomitant]
  13. TUBERSOL [Concomitant]
     Dosage: 5 UNIT/0.1 ML
  14. ROCEPHIN [Concomitant]
     Dosage: 1 GM
  15. COD LIVER OIL [Concomitant]
     Route: 048
     Dates: start: 20100901
  16. CLARITHROMYCIN [Concomitant]
     Dosage: FOR 10 DAYS
     Route: 048
  17. MERCAPTOPURINE [Concomitant]
     Dates: start: 20001121
  18. FERROL [Concomitant]
     Dosage: LIQUID, TWO TABLE SPOONS AS NECESSARY
     Route: 048
  19. ASCORBIC ACID [Concomitant]
     Route: 048
     Dates: start: 20100901
  20. PURINETHOL [Concomitant]
     Dosage: 50 MG TAB
  21. CALCIUM GLUCONATE [Concomitant]
     Dosage: 1 GM
     Route: 042
  22. KLOR-CON [Concomitant]
     Dosage: 20 MEQ
  23. GASTROVIST [Concomitant]
     Dosage: 60 L
     Route: 048
  24. PEPCID [Concomitant]
     Dosage: 20 MG

REACTIONS (1)
  - PNEUMONIA [None]
